FAERS Safety Report 21634082 (Version 1)
Quarter: 2022Q4

REPORT INFORMATION
  Report Type: Spontaneous
  Country: US (occurrence: US)
  Receive Date: 20221123
  Receipt Date: 20221123
  Transmission Date: 20230112
  Serious: No
  Sender: FDA-Public Use
  Company Number: US-FreseniusKabi-FK202216080

PATIENT
  Weight: 49 kg

DRUGS (1)
  1. HEPARIN SODIUM [Suspect]
     Active Substance: HEPARIN SODIUM
     Indication: Product used for unknown indication
     Dosage: GIVEN 5000 UNITS OF HEPARIN, HEPARIN WAS TAKEN FROM 2 ROOMS, 2 ACT MACHINES WERE USED TO EVALUATE EF

REACTIONS (1)
  - Drug ineffective [Unknown]
